FAERS Safety Report 7072138-4 (Version None)
Quarter: 2010Q4

REPORT INFORMATION
  Report Type: 
  Country: None (occurrence: None)
  Receive Date: 20101029
  Receipt Date: 20091207
  Transmission Date: 20110411
  Serious: No
  Sender: FDA-Public Use
  Company Number: A0833902A

PATIENT
  Age: 69 Year
  Sex: Female

DRUGS (5)
  1. ADVAIR DISKUS 100/50 [Suspect]
     Indication: ASTHMA
     Dosage: 1PUFF TWICE PER DAY
     Route: 055
     Dates: start: 20060101
  2. SINGULAIR [Concomitant]
  3. LISINOPRIL [Concomitant]
  4. LOVASTATIN [Concomitant]
  5. VENTOLIN [Concomitant]

REACTIONS (3)
  - BRONCHITIS [None]
  - DYSPHONIA [None]
  - OROPHARYNGEAL DISCOMFORT [None]
